FAERS Safety Report 24644052 (Version 1)
Quarter: 2024Q4

REPORT INFORMATION
  Report Type: Spontaneous
  Country: CN (occurrence: CN)
  Receive Date: 20241120
  Receipt Date: 20241120
  Transmission Date: 20250115
  Serious: Yes (Hospitalization, Other)
  Sender: BAYER HEALTHCARE PHARMACEUTICALS INC.
  Company Number: CN-BAYER-2024A165169

PATIENT
  Age: 66 Year
  Sex: Male

DRUGS (2)
  1. STIVARGA [Suspect]
     Active Substance: REGORAFENIB MONOHYDRATE
     Indication: Rectal cancer
     Dosage: 80 MG, QD
     Route: 048
     Dates: start: 20241011
  2. SINTILIMAB [Suspect]
     Active Substance: SINTILIMAB
     Indication: Rectal cancer
     Dosage: 200 MG, QD
     Route: 041
     Dates: start: 20241011, end: 20241011

REACTIONS (4)
  - Febrile infection [None]
  - Myelosuppression [Recovering/Resolving]
  - Product prescribing issue [None]
  - Incorrect dose administered [None]

NARRATIVE: CASE EVENT DATE: 20240101
